FAERS Safety Report 5018876-6 (Version None)
Quarter: 2006Q2

REPORT INFORMATION
  Report Type: 
  Country: None (occurrence: None)
  Receive Date: 20060606
  Receipt Date: 20060531
  Transmission Date: 20061013
  Serious: Yes (Hospitalization)
  Sender: FDA-Public Use
  Company Number: 2006AP02451

PATIENT
  Age: 60 Year
  Sex: Female

DRUGS (3)
  1. NEXIUM [Suspect]
     Route: 048
     Dates: start: 20051228, end: 20060105
  2. CLARITHROMYCIN [Suspect]
     Route: 048
     Dates: start: 20051228, end: 20060105
  3. IBILEX [Suspect]
     Route: 048
     Dates: start: 20051228, end: 20060107

REACTIONS (6)
  - DYSPNOEA [None]
  - EYE IRRITATION [None]
  - HEADACHE [None]
  - RASH ERYTHEMATOUS [None]
  - RASH MACULO-PAPULAR [None]
  - URTICARIA [None]
